FAERS Safety Report 4480378-3 (Version None)
Quarter: 2004Q4

REPORT INFORMATION
  Report Type: 
  Country: None (occurrence: None)
  Receive Date: 20041018
  Receipt Date: 20040930
  Transmission Date: 20050328
  Serious: Yes (Other)
  Sender: FDA-Public Use
  Company Number: 2004IC000548

PATIENT
  Age: 75 Year
  Sex: Male

DRUGS (14)
  1. FLUOROURACIL [Suspect]
     Indication: COLORECTAL CANCER METASTATIC
     Dosage: SEE IMAGE
     Route: 040
     Dates: end: 19990826
  2. FLUOROURACIL [Suspect]
     Indication: COLORECTAL CANCER METASTATIC
     Dosage: SEE IMAGE
     Route: 040
     Dates: start: 19990826
  3. LEUCOVORIN CALCIUM [Suspect]
     Indication: COLORECTAL CANCER METASTATIC
     Dosage: 150 MG/M**2; INTRAVENOUS
     Route: 042
  4. CAPOTEN [Concomitant]
  5. MAGNESIUM OXIDE [Concomitant]
  6. EUCLIDAN [Concomitant]
  7. HYTRIN [Concomitant]
  8. THIAMINE [Concomitant]
  9. DECADRON [Concomitant]
  10. ALLERMIN [Concomitant]
  11. PRIMPERAN INJ [Concomitant]
  12. OXALIPLATIN [Concomitant]
  13. HEPARIN [Concomitant]
  14. AKINETON [Concomitant]

REACTIONS (5)
  - COMA [None]
  - HEPATIC ENCEPHALOPATHY [None]
  - HEPATOTOXICITY [None]
  - HYPERAMMONAEMIA [None]
  - STUPOR [None]
